FAERS Safety Report 10912839 (Version 1)
Quarter: 2015Q1

REPORT INFORMATION
  Report Type: Spontaneous
  Country: US (occurrence: None)
  Receive Date: 20150310
  Receipt Date: 20150310
  Transmission Date: 20150721
  Serious: Yes (Hospitalization)
  Sender: FDA-Public Use
  Company Number: None

PATIENT
  Age: 73 Year
  Sex: Male
  Weight: 83.92 kg

DRUGS (6)
  1. FINASTRIDIL [Concomitant]
  2. ELIPIN [Concomitant]
  3. FAMSULOSIN [Concomitant]
  4. CADIOVERGIN [Concomitant]
  5. TAMSULOSINE [Suspect]
     Active Substance: TAMSULOSIN HYDROCHLORIDE
     Indication: BENIGN PROSTATIC HYPERPLASIA
     Dosage: BY MOUTH
     Dates: start: 20111021, end: 20150117
  6. SOTALOL. [Concomitant]
     Active Substance: SOTALOL

REACTIONS (1)
  - Atrial fibrillation [None]

NARRATIVE: CASE EVENT DATE: 20131011
